FAERS Safety Report 17638638 (Version 1)
Quarter: 2020Q2

REPORT INFORMATION
  Report Type: Spontaneous
  Country: DE (occurrence: DE)
  Receive Date: 20200407
  Receipt Date: 20200407
  Transmission Date: 20200713
  Serious: Yes (Other)
  Sender: FDA-Public Use
  Company Number: DE-GALDERMA-DE2020011438

PATIENT
  Age: 53 Year
  Sex: Female
  Weight: 62 kg

DRUGS (1)
  1. SOOLANTRA [Suspect]
     Active Substance: IVERMECTIN
     Indication: PAPULOPUSTULAR ROSACEA
     Dosage: 1%
     Route: 061
     Dates: start: 20200202, end: 20200216

REACTIONS (8)
  - Pain of skin [Recovering/Resolving]
  - Application site pain [Recovered/Resolved]
  - Feeling cold [Recovering/Resolving]
  - Haematochezia [Recovered/Resolved]
  - Paraesthesia [Recovered/Resolved]
  - Tenderness [Recovered/Resolved]
  - Irritable bowel syndrome [Not Recovered/Not Resolved]
  - Gastrointestinal pain [Not Recovered/Not Resolved]

NARRATIVE: CASE EVENT DATE: 202002
